FAERS Safety Report 17369244 (Version 1)
Quarter: 2020Q1

REPORT INFORMATION
  Report Type: Spontaneous
  Country: US (occurrence: US)
  Receive Date: 20200117
  Receipt Date: 20200117
  Transmission Date: 20200409
  Serious: No
  Sender: FDA-Public Use
  Company Number: None

PATIENT

DRUGS (1)
  1. ERTAPENEM SODIUM ERTAPENEM [Suspect]
     Active Substance: ERTAPENEM SODIUM
     Dosage: INJECTABLE  SINGLE DOSE VIAL   1 GRAM/VIAL
     Route: 042

REACTIONS (3)
  - Incorrect dose administered by product [None]
  - Product reconstitution quality issue [None]
  - Product preparation issue [None]
